FAERS Safety Report 19447431 (Version 1)
Quarter: 2021Q2

REPORT INFORMATION
  Report Type: Spontaneous
  Country: US (occurrence: US)
  Receive Date: 20210621
  Receipt Date: 20210621
  Transmission Date: 20210717
  Serious: Yes (Hospitalization)
  Sender: FDA-Public Use
  Company Number: None

PATIENT
  Sex: Female

DRUGS (1)
  1. HUMIRA [Suspect]
     Active Substance: ADALIMUMAB
     Indication: PSORIASIS
     Dosage: ?          OTHER FREQUENCY:EVERY 14 DAYS;?
     Route: 058
     Dates: start: 20210511

REACTIONS (8)
  - Pain [None]
  - Hypotension [None]
  - Rash [None]
  - Condition aggravated [None]
  - Sepsis [None]
  - Discomfort [None]
  - Urinary tract infection [None]
  - Infection [None]
